FAERS Safety Report 10239074 (Version 4)
Quarter: 2016Q1

REPORT INFORMATION
  Report Type: Report from Study
  Country: US (occurrence: US)
  Receive Date: 20140616
  Receipt Date: 20160226
  Transmission Date: 20160525
  Serious: Yes (Disabling)
  Sender: FDA-Public Use
  Company Number: US-SA-2013SA100932

PATIENT
  Sex: Male

DRUGS (2)
  1. AUBAGIO [Suspect]
     Active Substance: TERIFLUNOMIDE
     Indication: MULTIPLE SCLEROSIS
     Route: 048
  2. AUBAGIO [Suspect]
     Active Substance: TERIFLUNOMIDE
     Indication: MULTIPLE SCLEROSIS
     Route: 048
     Dates: start: 20130831, end: 20140603

REACTIONS (6)
  - Influenza like illness [Recovered/Resolved]
  - Fatigue [Unknown]
  - Nasopharyngitis [Recovered/Resolved]
  - Alopecia [Unknown]
  - Walking aid user [Unknown]
  - Nausea [Recovered/Resolved]
